FAERS Safety Report 8116243-X (Version None)
Quarter: 2012Q1

REPORT INFORMATION
  Report Type: 
  Country: None (occurrence: None)
  Receive Date: 20120206
  Receipt Date: 20120130
  Transmission Date: 20120608
  Serious: Yes (Hospitalization, Other)
  Sender: FDA-Public Use
  Company Number: US-ABBOTT-11P-163-0860594-00

PATIENT
  Sex: Female
  Weight: 88.984 kg

DRUGS (10)
  1. HUMIRA [Suspect]
     Indication: RHEUMATOID ARTHRITIS
     Dates: start: 20110323, end: 20111201
  2. IBUPROFEN [Concomitant]
     Indication: PAIN
  3. FOLIC ACID [Concomitant]
     Indication: VITAMIN SUPPLEMENTATION
  4. CYMBALTA [Concomitant]
     Indication: DEPRESSION
  5. HUMIRA [Suspect]
     Dates: start: 20111201
  6. HYDROCODONE BITARTRATE [Concomitant]
     Indication: PAIN
  7. LISINOPRIL [Concomitant]
     Indication: CARDIAC DISORDER
  8. CYMBALTA [Concomitant]
     Indication: PAIN
  9. PROAIR HFA [Concomitant]
     Indication: WHEEZING
     Dates: start: 20110801
  10. METOPROLOL [Concomitant]
     Indication: HYPERTENSION

REACTIONS (13)
  - PAIN [None]
  - BRONCHITIS [None]
  - DYSPNOEA [None]
  - PO2 DECREASED [None]
  - ATRIAL FIBRILLATION [None]
  - NASOPHARYNGITIS [None]
  - BURNING SENSATION [None]
  - ARRHYTHMIA [None]
  - JOINT CREPITATION [None]
  - GAIT DISTURBANCE [None]
  - PAIN IN EXTREMITY [None]
  - INTERVERTEBRAL DISC COMPRESSION [None]
  - OXYGEN SATURATION DECREASED [None]
